FAERS Safety Report 6075694-8 (Version None)
Quarter: 2009Q1

REPORT INFORMATION
  Report Type: 
  Country: None (occurrence: None)
  Receive Date: 20090212
  Receipt Date: 20090206
  Transmission Date: 20090719
  Serious: Yes (Other)
  Sender: FDA-Public Use
  Company Number: CH-MERCK-0902CHE00004

PATIENT
  Age: 19 Year
  Sex: Female

DRUGS (3)
  1. NOROXIN [Suspect]
     Route: 048
     Dates: start: 20090119, end: 20090119
  2. METOPIMAZINE [Suspect]
     Route: 048
     Dates: start: 20090119, end: 20090119
  3. IBUPROFEN [Suspect]
     Route: 048
     Dates: start: 20090119, end: 20090119

REACTIONS (2)
  - DRUG EXPOSURE DURING PREGNANCY [None]
  - INTENTIONAL OVERDOSE [None]
